FAERS Safety Report 8513012-3 (Version None)
Quarter: 2012Q3

REPORT INFORMATION
  Report Type: 
  Country: None (occurrence: None)
  Receive Date: 20120705
  Receipt Date: 20120620
  Transmission Date: 20120928
  Serious: Yes (Disabling)
  Sender: FDA-Public Use
  Company Number: 2012-00965

PATIENT
  Age: 72 Year
  Sex: Female
  Weight: 84 kg

DRUGS (9)
  1. SIMVASTATIN [Suspect]
     Indication: PRODUCT USED FOR UNKNOWN INDICATION
  2. ASPIRIN [Concomitant]
  3. CLOPIDOGREL HYDROGEN SULPHATE (PLAVIX) [Concomitant]
  4. VALSARTAN [Concomitant]
  5. LEVOTHYROXINE SODIUM [Concomitant]
  6. BISOPROLOL FUMARATE [Concomitant]
  7. ACETAMINOPHEN AND CODEINE PHOSPHATE [Concomitant]
  8. BEZAFIBRATE [Concomitant]
  9. LANSOPRAZOLE [Concomitant]

REACTIONS (3)
  - PAIN IN EXTREMITY [None]
  - OEDEMA PERIPHERAL [None]
  - MASS [None]
